FAERS Safety Report 6051065-5 (Version None)
Quarter: 2009Q1

REPORT INFORMATION
  Report Type: 
  Country: None (occurrence: None)
  Receive Date: 20090121
  Receipt Date: 20090121
  Transmission Date: 20090719
  Serious: No
  Sender: FDA-Public Use
  Company Number: None

PATIENT
  Age: 17 Year
  Sex: Male
  Weight: 70.4 kg

DRUGS (1)
  1. CEFTRIAXONE [Suspect]
     Dosage: 1 GM Q24H IV
     Route: 042
     Dates: start: 20080814

REACTIONS (2)
  - LIP SWELLING [None]
  - URTICARIA [None]
